FAERS Safety Report 5452807-X (Version None)
Quarter: 2007Q3

REPORT INFORMATION
  Report Type: 
  Country: None (occurrence: None)
  Receive Date: 20070914
  Receipt Date: 20070904
  Transmission Date: 20080115
  Serious: Yes (Hospitalization, Other)
  Sender: FDA-Public Use
  Company Number: GR-ELI_LILLY_AND_COMPANY-GR200709000554

PATIENT
  Age: 45 Year
  Sex: Female

DRUGS (1)
  1. LADOSE [Suspect]
     Indication: MAJOR DEPRESSION
     Dosage: 40 MG, DAILY (1/D)
     Route: 048
     Dates: start: 20070402

REACTIONS (1)
  - BREAST CANCER [None]
